FAERS Safety Report 12031301 (Version 2)
Quarter: 2018Q1

REPORT INFORMATION
  Report Type: Report from Study
  Country: None (occurrence: US)
  Receive Date: 20160207
  Receipt Date: 20180307
  Transmission Date: 20180508
  Serious: Yes (Hospitalization)
  Sender: FDA-Public Use
  Company Number: US-ABBVIE-15K-163-1507927-00

PATIENT
  Age: 62 Year
  Sex: Female
  Weight: 118.95 kg

DRUGS (6)
  1. ISOSORBIDE. [Concomitant]
     Active Substance: ISOSORBIDE
     Indication: PAIN PROPHYLAXIS
  2. ASPIRIN. [Concomitant]
     Active Substance: ASPIRIN
     Indication: PAIN PROPHYLAXIS
     Dates: start: 2015
  3. HUMIRA [Suspect]
     Active Substance: ADALIMUMAB
     Indication: PSORIASIS
     Route: 058
     Dates: start: 20150923, end: 201710
  4. HUMIRA [Suspect]
     Active Substance: ADALIMUMAB
     Indication: CROHN^S DISEASE
  5. HUMIRA [Suspect]
     Active Substance: ADALIMUMAB
     Indication: ARTHRITIS
  6. PLAVIX [Concomitant]
     Active Substance: CLOPIDOGREL BISULFATE
     Indication: ISCHAEMIC HEART DISEASE PROPHYLAXIS

REACTIONS (2)
  - Myocardial infarction [Recovered/Resolved]
  - Coronary artery occlusion [Recovered/Resolved]

NARRATIVE: CASE EVENT DATE: 20151106
